FAERS Safety Report 16720463 (Version 6)
Quarter: 2020Q1

REPORT INFORMATION
  Report Type: Report from Study
  Country: US (occurrence: US)
  Receive Date: 20190820
  Receipt Date: 20200108
  Transmission Date: 20200409
  Serious: Yes (Other)
  Sender: FDA-Public Use
  Company Number: US-PFIZER INC-2019340217

PATIENT
  Age: 48 Year
  Sex: Female

DRUGS (2)
  1. IBRANCE [Suspect]
     Active Substance: PALBOCICLIB
     Dosage: 125 MG, CYCLIC (DAILY FOR 21 DAYS OF 28-DAY CYCLE)
     Route: 048
     Dates: start: 20191016
  2. IBRANCE [Suspect]
     Active Substance: PALBOCICLIB
     Indication: BREAST CANCER FEMALE
     Dosage: 125 MG, CYCLIC (DAILY FOR 21 DAYS OF 28-DAY CYCLE)
     Route: 048
     Dates: start: 20190730, end: 20190923

REACTIONS (12)
  - Weight increased [Unknown]
  - Odynophagia [Unknown]
  - Nausea [Unknown]
  - Musculoskeletal chest pain [Unknown]
  - Gastrooesophageal reflux disease [Unknown]
  - Decreased appetite [Unknown]
  - Increased appetite [Unknown]
  - Cough [Unknown]
  - Weight decreased [Unknown]
  - Fatigue [Unknown]
  - Alopecia [Unknown]
  - Fungal pharyngitis [Unknown]

NARRATIVE: CASE EVENT DATE: 2019
